APPROVED DRUG PRODUCT: DOXERCALCIFEROL
Active Ingredient: DOXERCALCIFEROL
Strength: 2.5MCG
Dosage Form/Route: CAPSULE;ORAL
Application: A201518 | Product #003 | TE Code: AB
Applicant: RISING PHARMA HOLDINGS INC
Approved: Sep 9, 2016 | RLD: No | RS: No | Type: RX